FAERS Safety Report 5332488-6 (Version None)
Quarter: 2007Q2

REPORT INFORMATION
  Report Type: 
  Country: None (occurrence: None)
  Receive Date: 20070523
  Receipt Date: 20070511
  Transmission Date: 20071010
  Serious: Yes (Hospitalization)
  Sender: FDA-Public Use
  Company Number: JP-SANOFI-SYNTHELABO-A01200703761

PATIENT
  Sex: Female
  Weight: 47.5 kg

DRUGS (13)
  1. CATACLOT [Concomitant]
     Dosage: UNK
     Route: 042
     Dates: start: 20070221, end: 20070227
  2. VOLTAREN [Concomitant]
     Route: 048
     Dates: start: 20010730
  3. PANPYOTIN [Concomitant]
     Route: 048
     Dates: start: 20001016
  4. MAGNESIUM OXIDE [Concomitant]
     Route: 048
     Dates: start: 20001016
  5. HYPEN [Concomitant]
     Route: 048
     Dates: start: 20001202
  6. SILECE [Concomitant]
     Route: 048
     Dates: start: 20010219
  7. MARZULENE S [Concomitant]
     Route: 048
     Dates: start: 20061011, end: 20070411
  8. BUP-4 [Concomitant]
     Route: 048
     Dates: start: 20060811, end: 20070410
  9. GRANDAXIN [Concomitant]
     Route: 048
     Dates: start: 20010122, end: 20070411
  10. GASMOTIN [Concomitant]
     Route: 048
     Dates: start: 20001030
  11. ADALAT [Concomitant]
     Route: 048
     Dates: start: 20001012
  12. PLAVIX [Suspect]
     Indication: TRANSIENT ISCHAEMIC ATTACK
     Route: 048
     Dates: start: 20070228, end: 20070411
  13. PLAVIX [Suspect]
     Indication: CEREBRAL INFARCTION
     Route: 048
     Dates: start: 20070228, end: 20070411

REACTIONS (4)
  - CONSTIPATION [None]
  - ILEUS [None]
  - NASOPHARYNGITIS [None]
  - PYREXIA [None]
